FAERS Safety Report 8398255-4 (Version None)
Quarter: 2012Q2

REPORT INFORMATION
  Report Type: 
  Country: None (occurrence: None)
  Receive Date: 20120531
  Receipt Date: 20120522
  Transmission Date: 20120825
  Serious: Yes (Other)
  Sender: FDA-Public Use
  Company Number: BR-SANOFI-AVENTIS-2012SA036456

PATIENT
  Age: 72 Year
  Sex: Female
  Weight: 66 kg

DRUGS (6)
  1. ARAVA [Suspect]
     Indication: RHEUMATOID ARTHRITIS
     Dosage: START-FEB-20121 TAB AFTER BREAKFAST
     Route: 048
     Dates: start: 20120101, end: 20120101
  2. CALCIUM [Concomitant]
     Indication: BONE DISORDER
     Route: 048
     Dates: start: 20070101
  3. ARAVA [Suspect]
     Dosage: 1 TAB AFTER BREAKFAST
     Route: 048
     Dates: start: 20120101, end: 20120501
  4. ARAVA [Suspect]
     Dosage: 1 TAB AFTER LUNCH
     Route: 048
     Dates: start: 20120101, end: 20120101
  5. ALENDRONATE SODIUM [Concomitant]
     Indication: ILL-DEFINED DISORDER
     Dosage: STRENGTH: 70 MG
     Route: 048
     Dates: start: 20090101
  6. METHOTREXATE [Concomitant]
     Indication: RHEUMATOID ARTHRITIS
     Dosage: STRENGTH: 2.5 MG
     Route: 048
     Dates: start: 20120201

REACTIONS (15)
  - SYNCOPE [None]
  - GAIT DISTURBANCE [None]
  - OEDEMA PERIPHERAL [None]
  - ABDOMINAL PAIN UPPER [None]
  - WOUND [None]
  - BALANCE DISORDER [None]
  - FATIGUE [None]
  - PRURITUS [None]
  - PAIN [None]
  - FALL [None]
  - DECREASED APPETITE [None]
  - NAUSEA [None]
  - LOSS OF CONSCIOUSNESS [None]
  - SENSATION OF HEAVINESS [None]
  - HEADACHE [None]
